FAERS Safety Report 5678427-X (Version None)
Quarter: 2008Q1

REPORT INFORMATION
  Report Type: 
  Country: None (occurrence: None)
  Receive Date: 20080320
  Receipt Date: 20080225
  Transmission Date: 20080703
  Serious: Yes (Other)
  Sender: FDA-Public Use
  Company Number: CC2008-011

PATIENT
  Age: 67 Year
  Sex: Male
  Weight: 73 kg

DRUGS (1)
  1. LIDOCAINE HCL [Suspect]
     Indication: LOCAL ANAESTHESIA
     Dosage: 160 MG, ONCE, TOPICAL
     Route: 061
     Dates: start: 20080205

REACTIONS (2)
  - DEVICE BREAKAGE [None]
  - FOREIGN BODY TRAUMA [None]
